FAERS Safety Report 14572399 (Version 4)
Quarter: 2018Q2

REPORT INFORMATION
  Report Type: Report from Study
  Country: CA (occurrence: CA)
  Receive Date: 20180226
  Receipt Date: 20180508
  Transmission Date: 20180711
  Serious: Yes (Hospitalization, Other)
  Sender: FDA-Public Use
  Company Number: CA-GLAXOSMITHKLINE-CA2016GSK162601

PATIENT
  Age: 37 Year
  Sex: Female

DRUGS (12)
  1. COSENTYX [Suspect]
     Active Substance: SECUKINUMAB
     Dosage: 150 MG QMO
     Route: 058
     Dates: start: 20170309
  2. COSENTYX [Suspect]
     Active Substance: SECUKINUMAB
     Dosage: 300 MG, UNK
     Route: 058
     Dates: start: 20180213
  3. CLOTRIMADERM [Concomitant]
     Indication: PRODUCT USED FOR UNKNOWN INDICATION
     Dosage: UNK
     Route: 065
  4. COSENTYX [Suspect]
     Active Substance: SECUKINUMAB
     Indication: ANKYLOSING SPONDYLITIS
     Dosage: 300 MG, QMO
     Route: 058
     Dates: start: 20161028
  5. COSENTYX [Suspect]
     Active Substance: SECUKINUMAB
     Dosage: 150 MG, QW
     Route: 058
     Dates: start: 20161118
  6. COSENTYX [Suspect]
     Active Substance: SECUKINUMAB
     Dosage: 150 MG, QW
     Route: 058
     Dates: start: 20161209
  7. DICLOFENAC SODIUM. [Suspect]
     Active Substance: DICLOFENAC SODIUM
     Indication: PRODUCT USED FOR UNKNOWN INDICATION
     Dosage: UNK, PRN
     Route: 061
  8. COSENTYX [Suspect]
     Active Substance: SECUKINUMAB
     Dosage: 150 MG, QW
     Route: 058
     Dates: start: 20161112
  9. COSENTYX [Suspect]
     Active Substance: SECUKINUMAB
     Dosage: 150 MG QMO
     Route: 058
     Dates: start: 201701
  10. COSENTYX [Suspect]
     Active Substance: SECUKINUMAB
     Dosage: 300 MG QMO
     Route: 058
     Dates: start: 20170409
  11. COSENTYX [Suspect]
     Active Substance: SECUKINUMAB
     Dosage: 300 MG, QMO
     Route: 058
     Dates: start: 201707
  12. COSENTYX [Suspect]
     Active Substance: SECUKINUMAB
     Dosage: 300 MG,QMO
     Route: 058
     Dates: start: 20171109

REACTIONS (39)
  - Psychomotor hyperactivity [Unknown]
  - Pain [Not Recovered/Not Resolved]
  - Viral infection [Unknown]
  - Sinusitis [Unknown]
  - Inappropriate schedule of drug administration [Unknown]
  - Gingival pain [Unknown]
  - Nasal discharge discolouration [Unknown]
  - Pharyngitis [Unknown]
  - Influenza like illness [Unknown]
  - Sleep disorder [Unknown]
  - Viral upper respiratory tract infection [Unknown]
  - Drug effect incomplete [Unknown]
  - Candida infection [Unknown]
  - Back pain [Recovering/Resolving]
  - Hot flush [Unknown]
  - Wheezing [Unknown]
  - Feeling abnormal [Unknown]
  - Musculoskeletal pain [Unknown]
  - Tonsillitis [Unknown]
  - Insomnia [Unknown]
  - Aphonia [Recovered/Resolved]
  - Protein total decreased [Unknown]
  - Rhinorrhoea [Recovering/Resolving]
  - Dysphagia [Unknown]
  - Tonsillar exudate [Unknown]
  - Oedema peripheral [Unknown]
  - Arthralgia [Unknown]
  - C-reactive protein increased [Unknown]
  - Dysphonia [Unknown]
  - Paranasal sinus discomfort [Unknown]
  - Sleep apnoea syndrome [Unknown]
  - Pelvic pain [Unknown]
  - Productive cough [Unknown]
  - Pyrexia [Unknown]
  - Infection [Unknown]
  - Influenza [Unknown]
  - Diarrhoea [Recovering/Resolving]
  - Pharyngeal erythema [Unknown]
  - Stress [Unknown]

NARRATIVE: CASE EVENT DATE: 201610
